FAERS Safety Report 5832485-8 (Version None)
Quarter: 2008Q3

REPORT INFORMATION
  Report Type: 
  Country: None (occurrence: None)
  Receive Date: 20080731
  Receipt Date: 20080716
  Transmission Date: 20090109
  Serious: Yes (Disabling)
  Sender: FDA-Public Use
  Company Number: 2008001693

PATIENT
  Age: 61 Year
  Sex: Female

DRUGS (4)
  1. TARCEVA [Suspect]
     Indication: LUNG NEOPLASM MALIGNANT
     Dosage: 150 MG, QD, ORAL
     Route: 048
     Dates: start: 20080421
  2. OXYCONTIN [Concomitant]
  3. NEXIUM [Concomitant]
  4. COTRIM [Concomitant]

REACTIONS (3)
  - BLINDNESS UNILATERAL [None]
  - METASTASES TO CENTRAL NERVOUS SYSTEM [None]
  - VISUAL ACUITY REDUCED [None]
